FAERS Safety Report 5319657-6 (Version None)
Quarter: 2007Q2

REPORT INFORMATION
  Report Type: 
  Country: None (occurrence: None)
  Receive Date: 20070508
  Receipt Date: 20070502
  Transmission Date: 20071010
  Serious: Yes (Hospitalization)
  Sender: FDA-Public Use
  Company Number: US-MERCK-0705USA00703

PATIENT
  Age: 83 Year
  Sex: Male

DRUGS (7)
  1. JANUVIA [Suspect]
     Route: 048
     Dates: start: 20070225
  2. NORVASC [Concomitant]
     Route: 065
  3. LASIX [Concomitant]
     Route: 065
  4. TOPROL-XL [Concomitant]
     Route: 065
  5. PLAVIX [Concomitant]
     Route: 065
  6. LIPITOR [Concomitant]
     Route: 065
  7. ZOLOFT [Concomitant]
     Route: 065

REACTIONS (1)
  - VERTIGO [None]
